FAERS Safety Report 13372931 (Version 1)
Quarter: 2017Q1

REPORT INFORMATION
  Report Type: Spontaneous
  Country: US (occurrence: US)
  Receive Date: 20170327
  Receipt Date: 20170327
  Transmission Date: 20170429
  Serious: No
  Sender: FDA-Public Use
  Company Number: US-SPEAR PHARMACEUTICALS-1064669

PATIENT
  Age: 71 Year
  Sex: Female
  Weight: 62.73 kg

DRUGS (3)
  1. NIACIN. [Concomitant]
     Active Substance: NIACIN
  2. CRESTOR [Concomitant]
     Active Substance: ROSUVASTATIN CALCIUM
  3. FLUOROURACIL. [Suspect]
     Active Substance: FLUOROURACIL
     Route: 061
     Dates: start: 20161114, end: 20161128

REACTIONS (2)
  - Unevaluable event [Not Recovered/Not Resolved]
  - Dysgeusia [None]

NARRATIVE: CASE EVENT DATE: 20161128
